FAERS Safety Report 23397300 (Version 1)
Quarter: 2024Q1

REPORT INFORMATION
  Report Type: Spontaneous
  Country: US (occurrence: US)
  Receive Date: 20240112
  Receipt Date: 20240112
  Transmission Date: 20240410
  Serious: No
  Sender: FDA-Public Use
  Company Number: US-ALVOGEN-2023089431

PATIENT
  Sex: Female

DRUGS (3)
  1. DECADRON [Suspect]
     Active Substance: DEXAMETHASONE
     Indication: Product used for unknown indication
  2. KEPPRA [Suspect]
     Active Substance: LEVETIRACETAM
     Indication: Product used for unknown indication
  3. TUKYSA [Suspect]
     Active Substance: TUCATINIB
     Indication: Breast cancer female

REACTIONS (4)
  - Back pain [Unknown]
  - Hypoaesthesia [Unknown]
  - Dysphagia [Unknown]
  - Headache [Unknown]
